FAERS Safety Report 5500561-5 (Version None)
Quarter: 2007Q4

REPORT INFORMATION
  Report Type: 
  Country: None (occurrence: None)
  Receive Date: 20071029
  Receipt Date: 20071017
  Transmission Date: 20080405
  Serious: Yes (Other)
  Sender: FDA-Public Use
  Company Number: GB-AMGEN-US249215

PATIENT
  Age: 61 Year
  Sex: Male

DRUGS (6)
  1. ENBREL [Suspect]
     Indication: DRUG USE FOR UNKNOWN INDICATION
     Route: 058
     Dates: start: 20070824, end: 20070928
  2. METHOTREXATE [Concomitant]
     Route: 058
     Dates: start: 20050201
  3. LIPITOR [Concomitant]
     Dosage: UNKNOWN
     Route: 048
  4. LYRICA [Concomitant]
     Route: 048
  5. DURAGESIC-100 [Concomitant]
     Dosage: 12 MICROGRAMS, FREQUENCY UNKNOWN
  6. FOLIC ACID [Concomitant]
     Route: 048
     Dates: start: 20050201

REACTIONS (2)
  - PRURITUS [None]
  - URTICARIA [None]
